FAERS Safety Report 12849373 (Version 1)
Quarter: 2016Q4

REPORT INFORMATION
  Report Type: Spontaneous
  Country: IN (occurrence: IN)
  Receive Date: 20161014
  Receipt Date: 20161014
  Transmission Date: 20170207
  Serious: Yes (Hospitalization, Other)
  Sender: FDA-Public Use
  Company Number: IN-SA-2016SA185427

PATIENT
  Age: 8 Year
  Sex: Female
  Weight: 17 kg

DRUGS (4)
  1. RIFAMPICIN [Suspect]
     Active Substance: RIFAMPIN
     Indication: DISSEMINATED TUBERCULOSIS
     Route: 065
  2. ISONIAZID. [Suspect]
     Active Substance: ISONIAZID
     Indication: DISSEMINATED TUBERCULOSIS
     Route: 065
  3. PYRAZINAMIDE. [Suspect]
     Active Substance: PYRAZINAMIDE
     Indication: DISSEMINATED TUBERCULOSIS
     Route: 065
  4. ETHAMBUTOL [Suspect]
     Active Substance: ETHAMBUTOL HYDROCHLORIDE
     Indication: DISSEMINATED TUBERCULOSIS
     Route: 065

REACTIONS (8)
  - Mycobacterium tuberculosis complex test positive [Recovered/Resolved]
  - Tuberculoma of central nervous system [Recovered/Resolved]
  - Depressed level of consciousness [Unknown]
  - Off label use [Unknown]
  - Drug resistance [Unknown]
  - Meningitis [Recovered/Resolved]
  - Hydrocephalus [Recovered/Resolved]
  - Drug-induced liver injury [Unknown]
